FAERS Safety Report 12138881 (Version 3)
Quarter: 2016Q1

REPORT INFORMATION
  Report Type: Spontaneous
  Country: US (occurrence: US)
  Receive Date: 20160302
  Receipt Date: 20160321
  Transmission Date: 20160526
  Serious: Yes (Hospitalization)
  Sender: FDA-Public Use
  Company Number: US-ACTELION PHARMACEUTICALS US, INC.-A-US2016-132053

PATIENT
  Age: 35 Year
  Sex: Female

DRUGS (4)
  1. WARFARIN [Concomitant]
     Active Substance: WARFARIN
  2. LETAIRIS [Concomitant]
     Active Substance: AMBRISENTAN
  3. SILDENAFIL. [Concomitant]
     Active Substance: SILDENAFIL
  4. VELETRI [Suspect]
     Active Substance: EPOPROSTENOL
     Indication: PULMONARY ARTERIAL HYPERTENSION
     Dosage: 160 NG/KG, PER MIN
     Route: 042
     Dates: start: 20140818

REACTIONS (7)
  - Catheter placement [Unknown]
  - Device leakage [Unknown]
  - Dyspnoea [Unknown]
  - Central venous catheterisation [Unknown]
  - Device related infection [Unknown]
  - Fluid retention [Unknown]
  - Device breakage [Unknown]
